FAERS Safety Report 10336544 (Version 3)
Quarter: 2014Q4

REPORT INFORMATION
  Report Type: Spontaneous
  Country: US (occurrence: US)
  Receive Date: 20140723
  Receipt Date: 20141205
  Transmission Date: 20150528
  Serious: No
  Sender: FDA-Public Use
  Company Number: US-BRISTOL-MYERS SQUIBB COMPANY-20305827

PATIENT
  Age: 77 Year
  Sex: Male

DRUGS (5)
  1. XARELTO [Concomitant]
     Active Substance: RIVAROXABAN
  2. CHLORTALIDONE [Concomitant]
     Active Substance: CHLORTHALIDONE
  3. CELEBREX [Concomitant]
     Active Substance: CELECOXIB
  4. COUMADIN [Suspect]
     Active Substance: WARFARIN SODIUM
     Indication: THROMBOSIS
     Dosage: DOSE DECREASED AND INCREASED
     Route: 048
     Dates: start: 1996
  5. OXYCONTIN [Concomitant]
     Active Substance: OXYCODONE HYDROCHLORIDE

REACTIONS (4)
  - International normalised ratio increased [Recovered/Resolved]
  - Rash pruritic [Recovered/Resolved]
  - Purpura [Unknown]
  - Chest discomfort [Unknown]
